APPROVED DRUG PRODUCT: OJJAARA
Active Ingredient: MOMELOTINIB DIHYDROCHLORIDE
Strength: EQ 150MG BASE
Dosage Form/Route: TABLET;ORAL
Application: N216873 | Product #002
Applicant: GLAXOSMITHKLINE LLC
Approved: Sep 15, 2023 | RLD: Yes | RS: No | Type: RX

PATENTS:
Patent 9809559 | Expires: Jun 11, 2035
Patent 8486941 | Expires: Jan 3, 2030
Patent RE48285 | Expires: Jun 11, 2035
Patent 11963962 | Expires: Dec 2, 2040

EXCLUSIVITY:
Code: NCE | Date: Sep 15, 2028
Code: ODE-441 | Date: Sep 15, 2030